FAERS Safety Report 9892607 (Version 2)
Quarter: 2014Q2

REPORT INFORMATION
  Report Type: Spontaneous
  Country: PT (occurrence: PT)
  Receive Date: 20140212
  Receipt Date: 20140516
  Transmission Date: 20141212
  Serious: Yes (Other)
  Sender: FDA-Public Use
  Company Number: PT-GILEAD-2014-0094232

PATIENT
  Sex: Female

DRUGS (4)
  1. AMBRISENTAN [Suspect]
     Indication: PULMONARY HYPERTENSION
     Dosage: 5 MG, QD
     Route: 048
     Dates: start: 2011
  2. AMBRISENTAN [Suspect]
     Dosage: 10 MG, QD
     Route: 048
  3. SILDENAFIL [Concomitant]
     Dosage: 40MG THREE TIMES PER DAY
  4. LASIX                              /00032601/ [Concomitant]
     Dosage: 40MG PER DAY

REACTIONS (2)
  - Exposure during pregnancy [Unknown]
  - Abortion induced [Unknown]
